FAERS Safety Report 6501814-4 (Version None)
Quarter: 2009Q4

REPORT INFORMATION
  Report Type: 
  Country: None (occurrence: None)
  Receive Date: 20091203
  Receipt Date: 20091116
  Transmission Date: 20100525
  Serious: Yes (Hospitalization)
  Sender: FDA-Public Use
  Company Number: B0607898A

PATIENT
  Age: 13 Year
  Sex: Female

DRUGS (1)
  1. AUGMENTIN '125' [Suspect]
     Dosage: ORAL
     Route: 048

REACTIONS (6)
  - ACUTE GENERALISED EXANTHEMATOUS PUSTULOSIS [None]
  - HYPOTENSION [None]
  - LIP SWELLING [None]
  - MUCOSAL INFLAMMATION [None]
  - ORAL DISORDER [None]
  - RED BLOOD CELL SEDIMENTATION RATE INCREASED [None]
